FAERS Safety Report 7987338-6 (Version None)
Quarter: 2011Q4

REPORT INFORMATION
  Report Type: 
  Country: None (occurrence: None)
  Receive Date: 20111216
  Receipt Date: 20111031
  Transmission Date: 20120403
  Serious: No
  Sender: FDA-Public Use
  Company Number: US-BRISTOL-MYERS SQUIBB COMPANY-16172702

PATIENT
  Age: 46 Year
  Sex: Female
  Weight: 95 kg

DRUGS (9)
  1. BLOOD PRESSURE MEDICATION [Concomitant]
  2. GLYBURIDE [Concomitant]
  3. ABILIFY [Suspect]
     Indication: BIPOLAR DISORDER
     Dosage: 2 TABLETS AT BEDTIME.
     Dates: start: 20010101
  4. LEXAPRO [Suspect]
     Indication: BIPOLAR DISORDER
  5. CELEXA [Concomitant]
  6. ABILIFY [Suspect]
     Indication: DEPRESSION
     Dosage: 2 TABLETS AT BEDTIME.
     Dates: start: 20010101
  7. LEXAPRO [Concomitant]
  8. INSULIN [Concomitant]
  9. DEPAKOTE [Suspect]
     Indication: BIPOLAR DISORDER

REACTIONS (3)
  - SCREAMING [None]
  - ABNORMAL BEHAVIOUR [None]
  - CRYING [None]
